FAERS Safety Report 9298854 (Version 1)
Quarter: 2013Q2

REPORT INFORMATION
  Report Type: Spontaneous
  Country: US (occurrence: US)
  Receive Date: 20130520
  Receipt Date: 20130520
  Transmission Date: 20140414
  Serious: No
  Sender: FDA-Public Use
  Company Number: US-PFIZER INC-2013152494

PATIENT
  Sex: Male

DRUGS (2)
  1. OXYCODONE HYDROCHLORIDE [Suspect]
     Indication: SHOULDER OPERATION
     Dosage: UNK
  2. SPIRIVA [Suspect]
     Dosage: UNK

REACTIONS (2)
  - Dry mouth [Unknown]
  - Constipation [Unknown]
